FAERS Safety Report 5025146-9 (Version None)
Quarter: 2006Q2

REPORT INFORMATION
  Report Type: 
  Country: None (occurrence: None)
  Receive Date: 20060613
  Receipt Date: 20060531
  Transmission Date: 20061013
  Serious: Yes (Hospitalization)
  Sender: FDA-Public Use
  Company Number: GBWYE672231MAY06

PATIENT
  Sex: Male
  Weight: 87 kg

DRUGS (2)
  1. ENBREL [Suspect]
     Indication: RHEUMATOID ARTHRITIS
     Route: 058
     Dates: start: 20040909, end: 20051115
  2. METHOTREXATE [Concomitant]
     Dosage: UNKNOWN

REACTIONS (4)
  - DRUG INEFFECTIVE [None]
  - MOUTH ULCERATION [None]
  - ORAL CANDIDIASIS [None]
  - SUICIDAL IDEATION [None]
